FAERS Safety Report 4408361-4 (Version None)
Quarter: 2004Q3

REPORT INFORMATION
  Report Type: 
  Country: None (occurrence: None)
  Receive Date: 20040726
  Receipt Date: 20040726
  Transmission Date: 20050211
  Serious: Yes (Hospitalization)
  Sender: FDA-Public Use
  Company Number: None

PATIENT
  Age: 78 Year
  Sex: Male
  Weight: 122 kg

DRUGS (11)
  1. AMIODARONE HCL [Suspect]
     Indication: ATRIAL FIBRILLATION
     Dosage: 400MG PO BID
     Route: 048
     Dates: start: 20040717
  2. AMIODARONE HCL [Suspect]
     Indication: PROPHYLAXIS
     Dosage: 400MG PO BID
     Route: 048
     Dates: start: 20040717
  3. AMIODARONE HCL [Suspect]
     Indication: ATRIAL FIBRILLATION
     Dosage: INFUSION
     Dates: start: 20040712, end: 20040716
  4. AMIODARONE HCL [Suspect]
     Indication: PROPHYLAXIS
     Dosage: INFUSION
     Dates: start: 20040712, end: 20040716
  5. DOPAMINE HCL [Concomitant]
  6. PRIMAXIN [Concomitant]
  7. FLAGYL [Concomitant]
  8. PROTAVIR [Concomitant]
  9. CIPRO [Concomitant]
  10. ROCEPHIN [Concomitant]
  11. CLINDAMYCIN [Concomitant]

REACTIONS (8)
  - ABDOMINAL DISCOMFORT [None]
  - ASTHENIA [None]
  - BLOOD GLUCOSE DECREASED [None]
  - CHOLESTASIS [None]
  - LEUKOCYTOCLASTIC VASCULITIS [None]
  - RASH [None]
  - RENAL FAILURE [None]
  - THROMBOCYTOPENIA [None]
